FAERS Safety Report 24404058 (Version 1)
Quarter: 2024Q4

REPORT INFORMATION
  Report Type: Spontaneous
  Country: US (occurrence: US)
  Receive Date: 20241007
  Receipt Date: 20241007
  Transmission Date: 20250114
  Serious: Yes (Death, Hospitalization, Other)
  Sender: ALEMBIC
  Company Number: US-ALEMBIC PHARMACUETICALS LIMITED-2024SCAL001417

PATIENT

DRUGS (2)
  1. THEOPHYLLINE ANHYDROUS [Suspect]
     Active Substance: THEOPHYLLINE ANHYDROUS
     Indication: Asthma
     Dosage: UNK
     Route: 065
  2. THEOPHYLLINE ANHYDROUS [Suspect]
     Active Substance: THEOPHYLLINE ANHYDROUS
     Indication: Chronic obstructive pulmonary disease

REACTIONS (13)
  - Toxicity to various agents [Fatal]
  - Generalised tonic-clonic seizure [Fatal]
  - Atrial fibrillation [Fatal]
  - Hypoxia [Fatal]
  - Shock [Fatal]
  - Pulse absent [Fatal]
  - Heart rate increased [Fatal]
  - Vasoplegia syndrome [Fatal]
  - Hypotension [Fatal]
  - Nausea [Fatal]
  - Disseminated intravascular coagulation [Fatal]
  - Antasthmatic drug level above therapeutic [Fatal]
  - Palpitations [Fatal]
